FAERS Safety Report 24909213 (Version 1)
Quarter: 2025Q1

REPORT INFORMATION
  Report Type: Spontaneous
  Country: US (occurrence: US)
  Receive Date: 20250131
  Receipt Date: 20250131
  Transmission Date: 20250408
  Serious: Yes (Death, Other)
  Sender: BRISTOL-MYERS SQUIBB COMPANY
  Company Number: US-BRISTOL-MYERS SQUIBB COMPANY-2025-012932

PATIENT
  Age: 94 Year
  Sex: Female
  Weight: 47.17 kg

DRUGS (1)
  1. POMALYST [Suspect]
     Active Substance: POMALIDOMIDE
     Indication: Plasma cell myeloma
     Dosage: FREQ: 1 CAPSULE DAILY FOR 14 DAYS, THEN 14 DAYS OFF
     Route: 048

REACTIONS (1)
  - Death [Fatal]
